FAERS Safety Report 6244676-5 (Version None)
Quarter: 2009Q2

REPORT INFORMATION
  Report Type: 
  Country: None (occurrence: None)
  Receive Date: 20090625
  Receipt Date: 20090622
  Transmission Date: 20091009
  Serious: Yes (Hospitalization, Other)
  Sender: FDA-Public Use
  Company Number: IN-ROXANE LABORATORIES, INC.-2009-RO-00604RO

PATIENT
  Age: 19 Year
  Sex: Female

DRUGS (6)
  1. DEXAMETHASONE [Suspect]
     Indication: PROCEDURAL SITE REACTION
     Dosage: 8 MG
     Route: 042
  2. LORAZEPAM [Suspect]
     Indication: PSYCHOTIC DISORDER
     Dosage: 1 MG
  3. AMOXICILLIN [Suspect]
     Route: 048
  4. IBUPROFEN [Suspect]
     Route: 048
  5. LIGNOCAINE W/ ADRENALINE [Suspect]
     Indication: ANAESTHESIA
  6. RISPERIDONE [Concomitant]
     Indication: PSYCHOTIC DISORDER
     Dosage: 2 MG

REACTIONS (2)
  - DRUG INEFFECTIVE [None]
  - PSYCHOTIC DISORDER [None]
